FAERS Safety Report 18436786 (Version 1)
Quarter: 2020Q4

REPORT INFORMATION
  Report Type: Report from Study
  Country: US (occurrence: US)
  Receive Date: 20201028
  Receipt Date: 20201028
  Transmission Date: 20210114
  Serious: Yes (Hospitalization)
  Sender: FDA-Public Use
  Company Number: US-JNJFOC-20190428673

PATIENT
  Age: 72 Year
  Sex: Male
  Weight: 98 kg

DRUGS (21)
  1. VITAMIN D3 [Concomitant]
     Active Substance: CHOLECALCIFEROL
     Route: 048
  2. FLUTICASONE. [Concomitant]
     Active Substance: FLUTICASONE
     Indication: SEASONAL ALLERGY
  3. LORAZEPAM. [Concomitant]
     Active Substance: LORAZEPAM
     Indication: ANXIETY
     Route: 048
  4. TRAZODONE [Concomitant]
     Active Substance: TRAZODONE HYDROCHLORIDE
     Indication: DEPRESSION
     Route: 048
  5. LOPERAMIDE [Concomitant]
     Active Substance: LOPERAMIDE
     Route: 048
  6. DARATUMUMAB [Suspect]
     Active Substance: DARATUMUMAB
     Indication: PLASMA CELL MYELOMA
     Dosage: DAYS 1, 8, 15, 22 FOR CYCLE 1-2; DAY 1 AND 15 CYCLES 3-6; AND DAY 1 OF 28 DAY CYCLE AFTER
     Route: 042
     Dates: start: 20180828
  7. POMALIDOMIDE [Suspect]
     Active Substance: POMALIDOMIDE
     Indication: PLASMA CELL MYELOMA
     Dosage: FREQUENCY: ON DAYS 1-21 OF EACH 28-DAY CYCLE?MOST RECENT DOSE 2 MG ON 10-JUN-2019
     Route: 048
     Dates: start: 20180828
  8. ACYCLOVIR. [Concomitant]
     Active Substance: ACYCLOVIR
     Route: 048
     Dates: start: 20180925
  9. ACETAMINOPHEN. [Concomitant]
     Active Substance: ACETAMINOPHEN
     Indication: PREMEDICATION
     Route: 048
     Dates: start: 20180828
  10. ATENOLOL. [Concomitant]
     Active Substance: ATENOLOL
     Indication: HYPERTENSION
     Route: 048
  11. HYDRALAZINE [Concomitant]
     Active Substance: HYDRALAZINE HYDROCHLORIDE
     Indication: HYPERTENSION
     Route: 048
     Dates: start: 20180925
  12. ATEZOLIZUMAB. [Suspect]
     Active Substance: ATEZOLIZUMAB
     Indication: PLASMA CELL MYELOMA
     Dosage: ON DAYS 2 AND 16 OF CYCLE 1 AND ON DAYS 1 AND 15 OF EACH SUBSEQUENT CYCLES
     Route: 042
     Dates: start: 20180829
  13. CETIRIZINE HYDROCHLORIDE. [Concomitant]
     Active Substance: CETIRIZINE HYDROCHLORIDE
     Indication: SEASONAL ALLERGY
     Route: 048
  14. FUROSEMIDE. [Concomitant]
     Active Substance: FUROSEMIDE
     Indication: CHRONIC KIDNEY DISEASE
     Route: 048
  15. DIPHENHYDRAMINE W/IBUPROFEN [Concomitant]
     Active Substance: DIPHENHYDRAMINE HYDROCHLORIDE\IBUPROFEN
     Indication: PAIN
     Route: 048
  16. DIPHENHYDRAMINE. [Concomitant]
     Active Substance: DIPHENHYDRAMINE
     Indication: PREMEDICATION
     Route: 048
     Dates: start: 20180828
  17. DARATUMUMAB [Suspect]
     Active Substance: DARATUMUMAB
     Dosage: 1616 MG?MOST RECENT DOSE (1536 MG) ON 03-DEC-2019
     Route: 042
     Dates: start: 20190319
  18. ATEZOLIZUMAB. [Suspect]
     Active Substance: ATEZOLIZUMAB
     Dosage: MOST RECENT DOSE ON 17-DEC-2019
     Route: 042
     Dates: start: 20190402
  19. OMEPRAZOLE. [Concomitant]
     Active Substance: OMEPRAZOLE
     Indication: GASTROOESOPHAGEAL REFLUX DISEASE
     Route: 048
  20. AMLODIPINE [Concomitant]
     Active Substance: AMLODIPINE BESYLATE
     Indication: HYPERTENSION
     Route: 048
  21. ASPIRIN. [Concomitant]
     Active Substance: ASPIRIN
     Indication: THROMBOSIS PROPHYLAXIS
     Route: 048

REACTIONS (3)
  - Influenza B virus test positive [Recovered/Resolved]
  - Febrile neutropenia [Recovered/Resolved]
  - Febrile neutropenia [Recovered/Resolved]

NARRATIVE: CASE EVENT DATE: 20190410
